FAERS Safety Report 11210960 (Version 4)
Quarter: 2017Q4

REPORT INFORMATION
  Report Type: Spontaneous
  Country: JP (occurrence: JP)
  Receive Date: 20150623
  Receipt Date: 20171107
  Transmission Date: 20180320
  Serious: Yes (Hospitalization, Disabling)
  Sender: FDA-Public Use
  Company Number: JP-ALLERGAN-1511609US

PATIENT
  Age: 68 Year
  Sex: Male

DRUGS (3)
  1. LUMIGAN [Suspect]
     Active Substance: BIMATOPROST
     Indication: NORMAL TENSION GLAUCOMA
     Dosage: 2 GTT, QD
     Route: 047
     Dates: start: 20130420
  2. AZOPT [Suspect]
     Active Substance: BRINZOLAMIDE
     Indication: NORMAL TENSION GLAUCOMA
     Dosage: 2 GTT, BID
     Route: 047
     Dates: start: 20130226
  3. ALPHAGAN P [Suspect]
     Active Substance: BRIMONIDINE TARTRATE
     Indication: NORMAL TENSION GLAUCOMA
     Dosage: 2 GTT, BID
     Route: 047
     Dates: start: 20130226, end: 20140930

REACTIONS (2)
  - Lung neoplasm malignant [Recovered/Resolved]
  - Retinal vein occlusion [Recovering/Resolving]

NARRATIVE: CASE EVENT DATE: 20140901
